FAERS Safety Report 6093721-9 (Version None)
Quarter: 2009Q1

REPORT INFORMATION
  Report Type: 
  Country: None (occurrence: None)
  Receive Date: 20090226
  Receipt Date: 20090219
  Transmission Date: 20090719
  Serious: Yes (Other)
  Sender: FDA-Public Use
  Company Number: US-JNJCH-2009004809

PATIENT
  Age: 21 Year
  Sex: Female
  Weight: 52.2 kg

DRUGS (1)
  1. VISINE-A [Suspect]
     Indication: DRY EYE
     Dosage: TEXT:ONCE AS DIRECTED
     Route: 047
     Dates: start: 20090218, end: 20080218

REACTIONS (6)
  - APPLICATION SITE BURN [None]
  - EXPIRED DRUG ADMINISTERED [None]
  - EYE PAIN [None]
  - EYE SWELLING [None]
  - OCULAR HYPERAEMIA [None]
  - PHOTOPHOBIA [None]
